FAERS Safety Report 5478679-5 (Version None)
Quarter: 2007Q4

REPORT INFORMATION
  Report Type: 
  Country: None (occurrence: None)
  Receive Date: 20071005
  Receipt Date: 20070927
  Transmission Date: 20080405
  Serious: Yes (Other)
  Sender: FDA-Public Use
  Company Number: GB-ABBOTT-07P-167-0418505-00

PATIENT
  Age: 48 Year
  Sex: Male

DRUGS (4)
  1. VALPROATE SODIUM [Suspect]
     Indication: EPILEPSY
     Route: 048
  2. TOPIRAMATE [Interacting]
     Indication: EPILEPSY
     Dates: start: 20000613
  3. TOPIRAMATE [Interacting]
  4. CLONAZEPAM [Concomitant]
     Indication: DRUG USE FOR UNKNOWN INDICATION

REACTIONS (7)
  - AMMONIA INCREASED [None]
  - CACHEXIA [None]
  - DRUG INTERACTION [None]
  - FATIGUE [None]
  - FOOD AVERSION [None]
  - MOBILITY DECREASED [None]
  - SOMNOLENCE [None]
